FAERS Safety Report 7440569-6 (Version None)
Quarter: 2011Q2

REPORT INFORMATION
  Report Type: 
  Country: None (occurrence: None)
  Receive Date: 20110427
  Receipt Date: 20110420
  Transmission Date: 20111010
  Serious: Yes (Hospitalization)
  Sender: FDA-Public Use
  Company Number: A0924600A

PATIENT
  Age: 65 Year
  Sex: Female
  Weight: 58.6 kg

DRUGS (1)
  1. ADVAIR DISKUS 100/50 [Suspect]
     Indication: ASTHMA
     Dosage: 1PUFF TWICE PER DAY
     Route: 055

REACTIONS (7)
  - RESPIRATORY DISORDER [None]
  - CHEST PAIN [None]
  - DRUG ADMINISTRATION ERROR [None]
  - BLOOD PRESSURE INCREASED [None]
  - ASTHMA [None]
  - CARDIAC DISORDER [None]
  - NAUSEA [None]
